FAERS Safety Report 17946608 (Version 2)
Quarter: 2022Q3

REPORT INFORMATION
  Report Type: Spontaneous
  Country: US (occurrence: US)
  Receive Date: 20200626
  Receipt Date: 20220726
  Transmission Date: 20221027
  Serious: Yes (Death, Other)
  Sender: FDA-Public Use
  Company Number: US-SAARTEMIS-SAC202006230151

PATIENT
  Age: 65 Year
  Sex: Male

DRUGS (1)
  1. ZANTAC [Suspect]
     Active Substance: RANITIDINE HYDROCHLORIDE
     Indication: Dyspepsia
     Dosage: UNK
     Route: 065
     Dates: start: 200001, end: 201101

REACTIONS (4)
  - Gastric cancer [Fatal]
  - Renal cancer [Fatal]
  - Hepatic cancer [Fatal]
  - Brain neoplasm [Fatal]

NARRATIVE: CASE EVENT DATE: 20080101
